FAERS Safety Report 8694695 (Version 2)
Quarter: 2013Q4

REPORT INFORMATION
  Report Type: Report from Study
  Country: US (occurrence: US)
  Receive Date: 20120731
  Receipt Date: 20131031
  Transmission Date: 20140711
  Serious: Yes (Hospitalization, Other)
  Sender: FDA-Public Use
  Company Number: US-009507513-2012SP036952

PATIENT
  Sex: Female

DRUGS (4)
  1. PEG-INTRON [Suspect]
     Indication: HEPATITIS C
     Dosage: UNK
     Dates: start: 20120101, end: 20120601
  2. PEG-INTRON [Suspect]
     Dosage: UNK
     Dates: start: 20120630, end: 20120717
  3. REBETOL [Suspect]
     Indication: HEPATITIS C
     Dosage: UNK
     Dates: start: 20120101, end: 20120601
  4. REBETOL [Suspect]
     Dosage: UNK
     Dates: start: 20120630, end: 20120717

REACTIONS (4)
  - Anaemia [Unknown]
  - Dyspnoea [Unknown]
  - Drug ineffective [Unknown]
  - Dyspnoea [Unknown]
